FAERS Safety Report 9550716 (Version 3)
Quarter: 2019Q2

REPORT INFORMATION
  Report Type: Spontaneous
  Country: US (occurrence: US)
  Receive Date: 20130924
  Receipt Date: 20190501
  Transmission Date: 20190711
  Serious: Yes (Other)
  Sender: FDA-Public Use
  Company Number: US-SANOFI-AVENTIS-2013SA046469

PATIENT
  Age: 64 Year
  Sex: Male

DRUGS (2)
  1. AUBAGIO [Suspect]
     Active Substance: TERIFLUNOMIDE
     Dosage: 14 MG
     Route: 048
     Dates: start: 20190411
  2. AUBAGIO [Suspect]
     Active Substance: TERIFLUNOMIDE
     Indication: MULTIPLE SCLEROSIS
     Dosage: 14 MG,QD
     Route: 048
     Dates: start: 2013

REACTIONS (12)
  - Hepatic pain [Unknown]
  - Dizziness [Unknown]
  - Arthralgia [Unknown]
  - Malaise [Unknown]
  - Limb discomfort [Unknown]
  - Myalgia [Unknown]
  - Renal pain [Unknown]
  - Flushing [Unknown]
  - Pyrexia [Unknown]
  - Increased appetite [Unknown]
  - Multiple sclerosis [Unknown]
  - Pain [Unknown]

NARRATIVE: CASE EVENT DATE: 2013
